FAERS Safety Report 22083631 (Version 1)
Quarter: 2023Q1

REPORT INFORMATION
  Report Type: Spontaneous
  Country: US (occurrence: None)
  Receive Date: 20230309
  Receipt Date: 20230309
  Transmission Date: 20230418
  Serious: No
  Sender: FDA-Public Use
  Company Number: None

PATIENT
  Age: 37 Year
  Sex: Female
  Weight: 60.75 kg

DRUGS (1)
  1. DEXTROAMPHET SACCHARAT, AMPHET ASPARTATE, DEXTROAMPHET SULFATE AND AMP [Suspect]
     Active Substance: AMPHETAMINE ASPARTATE\AMPHETAMINE SULFATE\DEXTROAMPHETAMINE SACCHARATE\DEXTROAMPHETAMINE SULFATE
     Indication: Attention deficit hyperactivity disorder
     Dosage: OTHER QUANTITY : 90 TABLET(S);?FREQUENCY : 3 TIMES A DAY;?
     Route: 048
     Dates: start: 20090601, end: 20230307

REACTIONS (14)
  - Depression [None]
  - Dizziness [None]
  - Irritability [None]
  - Therapeutic response shortened [None]
  - Impaired work ability [None]
  - Product substitution issue [None]
  - Anxiety [None]
  - Lethargy [None]
  - Unhealthy lifestyle [None]
  - Product taste abnormal [None]
  - Product solubility abnormal [None]
  - Frustration tolerance decreased [None]
  - Manufacturing materials issue [None]
  - Quality of life decreased [None]

NARRATIVE: CASE EVENT DATE: 20221227
